FAERS Safety Report 22181254 (Version 1)
Quarter: 2023Q2

REPORT INFORMATION
  Report Type: Report from Study
  Country: GR (occurrence: GR)
  Receive Date: 20230406
  Receipt Date: 20230406
  Transmission Date: 20230722
  Serious: Yes (Hospitalization)
  Sender: FDA-Public Use
  Company Number: GR-ABBVIE-4717125

PATIENT
  Age: 75 Year
  Sex: Male
  Weight: 50 kg

DRUGS (4)
  1. VENETOCLAX [Suspect]
     Active Substance: VENETOCLAX
     Indication: Chronic lymphocytic leukaemia
     Dosage: DURATION TEXT: 5 CYCLES
     Route: 048
     Dates: start: 20220727
  2. omeprazole (Lordin) [Concomitant]
     Indication: Gastrointestinal disorder prophylaxis
     Route: 048
     Dates: start: 20220608
  3. folic acid (Filicine) [Concomitant]
     Indication: Anaemia prophylaxis
     Route: 048
     Dates: start: 20220608
  4. sulfamethoxazole and trimethoprim (Bactrimel) [Concomitant]
     Indication: Infection prophylaxis
     Dosage: UNIT DOSE: 800 + 160 MG
     Route: 048
     Dates: start: 20220608

REACTIONS (4)
  - Respiratory tract infection [Recovered/Resolved]
  - COVID-19 [Recovered/Resolved]
  - Pyrexia [Recovered/Resolved]
  - Pyrexia [Unknown]

NARRATIVE: CASE EVENT DATE: 20221224
